FAERS Safety Report 8020503-0 (Version None)
Quarter: 2012Q1

REPORT INFORMATION
  Report Type: 
  Country: None (occurrence: None)
  Receive Date: 20120103
  Receipt Date: 20111228
  Transmission Date: 20120608
  Serious: Yes (Life-Threatening, Hospitalization, Other)
  Sender: FDA-Public Use
  Company Number: JP-CELGENEUS-087-21880-11011577

PATIENT
  Sex: Female

DRUGS (33)
  1. FENTANYL-100 [Concomitant]
     Indication: MULTIPLE MYELOMA
     Route: 062
  2. REVLIMID [Suspect]
     Dosage: 10 MILLIGRAM
     Route: 048
     Dates: start: 20101113, end: 20101202
  3. BETAMETHASONE [Concomitant]
     Dosage: .5 MILLIGRAM
     Route: 048
     Dates: start: 20110120, end: 20110125
  4. MUCOSTA [Concomitant]
     Indication: PROPHYLAXIS
     Dosage: 300 MILLIGRAM
     Route: 048
     Dates: start: 20101016
  5. METHYCOBAL [Concomitant]
     Indication: MULTIPLE MYELOMA
     Dosage: 500 MILLIGRAM
     Route: 048
     Dates: start: 20101016
  6. FALESTACK [Concomitant]
     Indication: PROPHYLAXIS
     Dosage: 30 MILLILITER
     Route: 048
     Dates: start: 20110119, end: 20110124
  7. REVLIMID [Suspect]
     Dosage: 10 MILLIGRAM
     Route: 048
     Dates: start: 20101027, end: 20101103
  8. FENTANYL-100 [Concomitant]
     Dosage: 16.8 MILLIGRAM
     Route: 062
     Dates: start: 20110119, end: 20110124
  9. NOVAMIN [Concomitant]
     Dosage: 15 MILLIGRAM
     Route: 048
     Dates: start: 20101016
  10. REVLIMID [Suspect]
     Dosage: 5 MILLIGRAM
     Route: 048
     Dates: start: 20110120, end: 20110122
  11. DEXAMETHASONE ACETATE [Suspect]
     Indication: MULTIPLE MYELOMA
     Dosage: 4 MILLIGRAM
     Route: 048
     Dates: start: 20101119, end: 20101119
  12. DEXAMETHASONE ACETATE [Suspect]
     Dosage: 16 MILLIGRAM
     Route: 048
     Dates: start: 20101201, end: 20101229
  13. CEPHARANTHIN [Concomitant]
     Indication: MULTIPLE MYELOMA
     Dosage: 30 MILLIGRAM
     Route: 048
     Dates: start: 20101016
  14. BETAMETHASONE [Concomitant]
     Indication: MULTIPLE MYELOMA
     Dosage: .5 MILLIGRAM
     Route: 048
     Dates: start: 20101016
  15. ENSURE LIQUID [Concomitant]
     Indication: MULTIPLE MYELOMA
     Dosage: 250 MILLILITER
     Route: 048
     Dates: start: 20101016, end: 20101102
  16. MECOBALAMIN [Concomitant]
     Indication: MULTIPLE MYELOMA
     Dosage: 1500 MICROGRAM
     Route: 048
     Dates: start: 20110119, end: 20110124
  17. MAGNESIUM SULFATE [Concomitant]
     Indication: PROPHYLAXIS
     Dosage: 1980 MILLIGRAM
     Route: 048
     Dates: start: 20110119, end: 20110124
  18. REVLIMID [Suspect]
     Dosage: 10 MILLIGRAM
     Route: 048
     Dates: start: 20101022, end: 20101024
  19. DEXAMETHASONE ACETATE [Suspect]
     Dosage: 4 MILLIGRAM
     Route: 048
     Dates: start: 20101126, end: 20101126
  20. AMITRIPTYLINE HCL [Concomitant]
     Indication: MULTIPLE MYELOMA
     Dosage: 37.5 MILLIGRAM
     Route: 048
     Dates: start: 20110119, end: 20110124
  21. REVLIMID [Suspect]
     Dosage: 5 MILLIGRAM
     Route: 048
     Dates: start: 20110124, end: 20110124
  22. ACETAMINOPHEN [Concomitant]
     Indication: MULTIPLE MYELOMA
     Dosage: 300 MILLIGRAM
     Route: 048
     Dates: start: 20101016
  23. ETIZOLAM [Concomitant]
     Route: 048
  24. CLONAZEPAM [Concomitant]
     Indication: MULTIPLE MYELOMA
     Dosage: .5 MILLIGRAM
     Route: 048
     Dates: start: 20110119, end: 20110124
  25. REVLIMID [Suspect]
     Indication: MULTIPLE MYELOMA
     Dosage: 5 MILLIGRAM
     Route: 048
     Dates: start: 20101016, end: 20101021
  26. REVLIMID [Suspect]
     Dosage: 10 MILLIGRAM
     Route: 048
     Dates: start: 20101210, end: 20101229
  27. FENTANYL [Concomitant]
     Route: 061
     Dates: start: 20101201
  28. PROTECADIN [Concomitant]
     Indication: PROPHYLAXIS
     Dosage: 10 MILLIGRAM
     Route: 048
     Dates: start: 20101016
  29. FUNGIZONE [Concomitant]
     Indication: MULTIPLE MYELOMA
     Dosage: 8 MILLILITER
     Route: 048
     Dates: start: 20101016
  30. REBAMIPIDE [Concomitant]
     Indication: MULTIPLE MYELOMA
     Dosage: 300 MILLIGRAM
     Route: 048
     Dates: start: 20110119, end: 20110124
  31. GABAPENTIN [Concomitant]
     Indication: PROPHYLAXIS
     Dosage: 600 MILLIGRAM
     Route: 048
     Dates: start: 20110119, end: 20110124
  32. VALTREX [Concomitant]
     Indication: MULTIPLE MYELOMA
     Dosage: 500 MILLIGRAM
     Route: 048
     Dates: start: 20101016
  33. ACETAMINOPHEN [Concomitant]
     Dosage: 1800 MILLIGRAM
     Route: 048
     Dates: start: 20110119, end: 20110124

REACTIONS (15)
  - ALANINE AMINOTRANSFERASE INCREASED [None]
  - NEUTROPHIL COUNT DECREASED [None]
  - HYPERAMYLASAEMIA [None]
  - BLOOD LACTATE DEHYDROGENASE INCREASED [None]
  - HYPERTHERMIA [None]
  - ALTERED STATE OF CONSCIOUSNESS [None]
  - PYELONEPHRITIS [None]
  - PLATELET COUNT DECREASED [None]
  - LIP HAEMORRHAGE [None]
  - C-REACTIVE PROTEIN INCREASED [None]
  - PYREXIA [None]
  - RHABDOMYOLYSIS [None]
  - PSYCHIATRIC SYMPTOM [None]
  - ASPARTATE AMINOTRANSFERASE INCREASED [None]
  - PAIN [None]
